FAERS Safety Report 7705166-3 (Version None)
Quarter: 2011Q3

REPORT INFORMATION
  Report Type: 
  Country: None (occurrence: None)
  Receive Date: 20110824
  Receipt Date: 20110816
  Transmission Date: 20111222
  Serious: Yes (Hospitalization)
  Sender: FDA-Public Use
  Company Number: US-BIOGENIDEC-2011BI012601

PATIENT
  Age: 71 Year
  Sex: Female

DRUGS (4)
  1. AVONEX [Suspect]
     Route: 030
     Dates: start: 20050117
  2. TYSABRI [Concomitant]
     Indication: MULTIPLE SCLEROSIS
     Route: 042
     Dates: start: 20050117, end: 20050210
  3. AVONEX [Suspect]
     Indication: MULTIPLE SCLEROSIS
     Route: 030
     Dates: start: 20090924, end: 20091202
  4. AVONEX [Suspect]
     Route: 030
     Dates: start: 20101104

REACTIONS (1)
  - CONVULSION [None]
